FAERS Safety Report 11036421 (Version 2)
Quarter: 2015Q2

REPORT INFORMATION
  Report Type: Spontaneous
  Country: US (occurrence: US)
  Receive Date: 20150415
  Receipt Date: 20150525
  Transmission Date: 20150821
  Serious: No
  Sender: FDA-Public Use
  Company Number: US-JNJFOC-20130503003

PATIENT
  Age: 74 Year
  Sex: Female

DRUGS (1)
  1. XARELTO [Suspect]
     Active Substance: RIVAROXABAN
     Indication: DEEP VEIN THROMBOSIS POSTOPERATIVE
     Route: 048
     Dates: start: 20130503, end: 20130505

REACTIONS (5)
  - Headache [Unknown]
  - Mouth swelling [Unknown]
  - Oral mucosal exfoliation [Unknown]
  - Diarrhoea [Recovering/Resolving]
  - Pyrexia [Unknown]

NARRATIVE: CASE EVENT DATE: 201305
